FAERS Safety Report 6961797-X (Version None)
Quarter: 2010Q3

REPORT INFORMATION
  Report Type: 
  Country: None (occurrence: None)
  Receive Date: 20100901
  Receipt Date: 20100825
  Transmission Date: 20110219
  Serious: Yes (Hospitalization)
  Sender: FDA-Public Use
  Company Number: US-GILEAD-2010-0031077

PATIENT
  Sex: Male

DRUGS (10)
  1. LETAIRIS [Suspect]
     Indication: PULMONARY ARTERIAL HYPERTENSION
     Route: 048
     Dates: start: 20100727
  2. ADCIRCA [Concomitant]
     Dates: end: 20100808
  3. AMLODIPINE [Concomitant]
  4. MELOXICAM [Concomitant]
  5. FUROSEMIDE [Concomitant]
  6. DIOVAN [Concomitant]
  7. METOPROLOL TARTRATE [Concomitant]
  8. KLOR-CON [Concomitant]
  9. WARFARIN SODIUM [Concomitant]
  10. PLAVIX [Concomitant]

REACTIONS (2)
  - DYSPNOEA [None]
  - NON-CARDIAC CHEST PAIN [None]
